FAERS Safety Report 10253989 (Version 2)
Quarter: 2014Q4

REPORT INFORMATION
  Report Type: Spontaneous
  Country: SE (occurrence: SE)
  Receive Date: 20140623
  Receipt Date: 20141216
  Transmission Date: 20150528
  Serious: Yes (Hospitalization, Other)
  Sender: FDA-Public Use
  Company Number: SE-PFIZER INC-2014169546

PATIENT
  Age: 47 Year
  Sex: Female

DRUGS (12)
  1. QUETIAPINE FUMARATE. [Suspect]
     Active Substance: QUETIAPINE FUMARATE
     Dosage: 2 G, UNK
  2. LAMOTRIGINE. [Suspect]
     Active Substance: LAMOTRIGINE
     Dosage: 1500 MG, UNK
  3. LEVAXIN [Suspect]
     Active Substance: LEVOTHYROXINE SODIUM
     Dosage: 500 UG, UNK
  4. CLOMIPRAMINE [Suspect]
     Active Substance: CLOMIPRAMINE
     Dosage: 750 MG, UNK
  5. LYRICA [Suspect]
     Active Substance: PREGABALIN
     Dosage: UNK
  6. OLANZAPINE. [Suspect]
     Active Substance: OLANZAPINE
     Dosage: 50 MG, UNK
  7. SIMVASTATIN. [Suspect]
     Active Substance: SIMVASTATIN
     Dosage: 100 MG, UNK
  8. DUROFERON [Suspect]
     Active Substance: FERROUS SULFATE\FERROUS SULFATE, DRIED
     Dosage: 800 MG, UNK
  9. SELOKEN [Suspect]
     Active Substance: METOPROLOL
     Dosage: 250 MG, UNK
  10. XANOR [Suspect]
     Active Substance: ALPRAZOLAM
     Dosage: 10 MG, UNK
  11. TOPAMAX [Suspect]
     Active Substance: TOPIRAMATE
     Dosage: 500 MG, UNK
  12. ZOPICLONE [Suspect]
     Active Substance: ZOPICLONE
     Dosage: 300 MG, UNK

REACTIONS (4)
  - Hypotonia [Unknown]
  - Toxicity to various agents [Unknown]
  - Oxygen saturation decreased [Unknown]
  - Depressed level of consciousness [Unknown]

NARRATIVE: CASE EVENT DATE: 20140427
